FAERS Safety Report 8855188 (Version 1)
Quarter: 2012Q4

REPORT INFORMATION
  Report Type: 
  Country: US (occurrence: US)
  Receive Date: 20121023
  Receipt Date: 20121023
  Transmission Date: 20130627
  Serious: No
  Sender: FDA-Public Use
  Company Number: US-AMGEN-USASP2012060036

PATIENT
  Sex: Male
  Weight: 75.28 kg

DRUGS (6)
  1. ENBREL [Suspect]
     Indication: PRODUCT USED FOR UNKNOWN INDICATION
     Dosage: 25 mg, 2 times/wk
     Route: 058
  2. REGLAN                             /00041901/ [Concomitant]
     Dosage: 10 mg, UNK
  3. NEXIUM                             /01479302/ [Concomitant]
     Dosage: 40 mg, UNK
  4. VITAMIN D /00107901/ [Concomitant]
     Dosage: 1000 unit, UNK
  5. AMBIEN [Concomitant]
     Dosage: 10 mg, UNK
  6. HYDROCODONE [Concomitant]
     Dosage: UNK

REACTIONS (3)
  - Therapeutic response decreased [Unknown]
  - Nasopharyngitis [Unknown]
  - Feeling abnormal [Unknown]
